FAERS Safety Report 4399273-3 (Version None)
Quarter: 2004Q3

REPORT INFORMATION
  Report Type: 
  Country: None (occurrence: None)
  Receive Date: 20040712
  Receipt Date: 20040701
  Transmission Date: 20050211
  Serious: Yes (Death)
  Sender: FDA-Public Use
  Company Number: F01200401694

PATIENT
  Age: 45 Year
  Sex: Female

DRUGS (5)
  1. (OXALIPLATIN ) - SOLUTION 130 MG/M2 [Suspect]
     Indication: NON-SMALL CELL LUNG CANCER
     Dosage: 130 MG/M2 Q3W
     Route: 042
     Dates: start: 20040629, end: 20040629
  2. GEMCITABINE SOLUTION - 1000 MG/M2 [Suspect]
     Dosage: 1000 MG/M3 ON D1 AND D8 Q3W
     Route: 042
     Dates: start: 20040629, end: 20040629
  3. VERAPAMIL ER (VERAPAMIL HCL) [Concomitant]
  4. VICODIN [Concomitant]
  5. OXYCONTIN [Concomitant]

REACTIONS (1)
  - CARDIAC ARREST [None]
